FAERS Safety Report 6599577-X (Version None)
Quarter: 2010Q1

REPORT INFORMATION
  Report Type: 
  Country: None (occurrence: None)
  Receive Date: 20100224
  Receipt Date: 20100212
  Transmission Date: 20100710
  Serious: Yes (Other)
  Sender: FDA-Public Use
  Company Number: DE-ELI_LILLY_AND_COMPANY-DE201002003735

PATIENT
  Sex: Female

DRUGS (7)
  1. YENTREVE [Suspect]
     Indication: STRESS URINARY INCONTINENCE
     Dosage: 40 MG, 2/D
     Route: 048
  2. UDRIK [Concomitant]
     Dosage: UNK, UNKNOWN
     Route: 065
  3. GLAUPAX [Concomitant]
     Dosage: UNK, UNKNOWN
     Route: 065
  4. PREDNI-POS [Concomitant]
     Dosage: UNK, UNKNOWN
     Route: 065
  5. ACALOR [Concomitant]
     Dosage: UNK, UNKNOWN
     Route: 065
  6. ZOLPIDEM [Concomitant]
     Dosage: UNK, UNKNOWN
     Route: 065
  7. OPIPRAMOL [Concomitant]
     Dosage: UNK, UNKNOWN
     Route: 065

REACTIONS (1)
  - IRITIS [None]
